FAERS Safety Report 9454575 (Version 1)
Quarter: 2013Q3

REPORT INFORMATION
  Report Type: Spontaneous
  Country: DE (occurrence: DE)
  Receive Date: 20130812
  Receipt Date: 20130812
  Transmission Date: 20140515
  Serious: Yes (Other)
  Sender: FDA-Public Use
  Company Number: DE-TEVA-424254GER

PATIENT
  Sex: Female

DRUGS (4)
  1. MTX [Suspect]
     Route: 042
     Dates: start: 2013
  2. VOLTAREN [Concomitant]
     Route: 048
  3. FOLSAEURE 5 MG [Concomitant]
  4. DECORTIN H 5 MG [Concomitant]

REACTIONS (4)
  - Rheumatoid arthritis [Unknown]
  - Drug ineffective [Unknown]
  - Arthralgia [Unknown]
  - Product substitution issue [Unknown]
